FAERS Safety Report 9001069 (Version 1)
Quarter: 2013Q1

REPORT INFORMATION
  Report Type: Spontaneous
  Country: US (occurrence: None)
  Receive Date: 20130102
  Receipt Date: 20130102
  Transmission Date: 20140127
  Serious: No
  Sender: FDA-Public Use
  Company Number: None

PATIENT
  Age: 85 Year
  Sex: Male
  Weight: 85.4 kg

DRUGS (2)
  1. WARFARIN [Suspect]
     Indication: PULMONARY EMBOLISM
     Dosage: 2 MG UD PO
     Route: 048
     Dates: start: 20120226, end: 20120418
  2. AMIODARONE [Suspect]
     Route: 048
     Dates: start: 20120310, end: 20120519

REACTIONS (1)
  - International normalised ratio increased [None]
